FAERS Safety Report 5165269-7 (Version None)
Quarter: 2006Q4

REPORT INFORMATION
  Report Type: 
  Country: None (occurrence: None)
  Receive Date: 20061124
  Receipt Date: 20061110
  Transmission Date: 20070319
  Serious: Yes (Death, Other)
  Sender: FDA-Public Use
  Company Number: 2006140874

PATIENT
  Age: 50 Year
  Sex: Female

DRUGS (3)
  1. EXEMESTANE [Suspect]
     Indication: BREAST CANCER
     Dosage: (25 MG), ORAL
     Route: 048
     Dates: end: 20061003
  2. MIRTAZAPINE [Suspect]
     Indication: DEPRESSION
     Dosage: (15 MG), ORAL
     Route: 048
     Dates: end: 20061003
  3. CHEMOTHERAPY NOS (CHEMOTHERAPY NOS) [Concomitant]

REACTIONS (3)
  - AGRANULOCYTOSIS [None]
  - LEUKOPENIA [None]
  - THROMBOCYTOPENIA [None]
